FAERS Safety Report 6612322-4 (Version None)
Quarter: 2010Q1

REPORT INFORMATION
  Report Type: 
  Country: None (occurrence: None)
  Receive Date: 20100302
  Receipt Date: 20100302
  Transmission Date: 20100710
  Serious: Yes (Hospitalization)
  Sender: FDA-Public Use
  Company Number: None

PATIENT
  Age: 67 Year
  Sex: Male
  Weight: 129.7287 kg

DRUGS (21)
  1. OXALIPLATIN [Suspect]
     Indication: GASTROOESOPHAGEAL CANCER
     Dosage: 140 MG EVERY 21 DAYS IV
     Route: 042
     Dates: start: 20090616, end: 20100128
  2. AVAPRO [Concomitant]
  3. SOTALOL HCL [Concomitant]
  4. LANOXIN [Concomitant]
  5. DILANTIN [Concomitant]
  6. DILANTIN [Concomitant]
  7. ZOLOFT [Concomitant]
  8. KEPPRA [Concomitant]
  9. SUPER [Concomitant]
  10. LUNESTA [Concomitant]
  11. ACETAMINOPHEN [Concomitant]
  12. METAMUCIL-2 [Concomitant]
  13. FLONASE [Concomitant]
  14. NEXIUM [Concomitant]
  15. CLARITIN [Concomitant]
  16. CALTRATE [Concomitant]
  17. LASIX [Concomitant]
  18. SPIRONOLACTONE [Concomitant]
  19. COMPAZINE [Concomitant]
  20. MUCINEX [Concomitant]
  21. ROSADERM [Concomitant]

REACTIONS (11)
  - ATELECTASIS [None]
  - ATRIAL FIBRILLATION [None]
  - CHOLELITHIASIS [None]
  - DYSPEPSIA [None]
  - HIATUS HERNIA [None]
  - HYPONATRAEMIA [None]
  - NAUSEA [None]
  - OESOPHAGITIS [None]
  - PLEURAL EFFUSION [None]
  - PULMONARY EMBOLISM [None]
  - VENTRICULAR EXTRASYSTOLES [None]
